FAERS Safety Report 17567072 (Version 1)
Quarter: 2020Q1

REPORT INFORMATION
  Report Type: Spontaneous
  Country: GB (occurrence: GB)
  Receive Date: 20200320
  Receipt Date: 20200320
  Transmission Date: 20200409
  Serious: Yes (Life-Threatening, Hospitalization)
  Sender: FDA-Public Use
  Company Number: GB-MYLANLABS-2020M1030127

PATIENT
  Age: 78 Year
  Sex: Female

DRUGS (18)
  1. BISOPROLOL [Concomitant]
     Active Substance: BISOPROLOL
     Dosage: 5 MILLIGRAM, QD (EACH MORNING)
  2. QUININE SULFATE. [Concomitant]
     Active Substance: QUININE SULFATE
     Dosage: 300 MILLIGRAM, QD (AT NIGHT)
  3. ACETYLSALICYLIC ACID [Suspect]
     Active Substance: ASPIRIN
     Indication: ACUTE MYOCARDIAL INFARCTION
     Dosage: 75 MILLIGRAM, QD
     Route: 065
     Dates: start: 201904, end: 201908
  4. LANSOPRAZOLE. [Concomitant]
     Active Substance: LANSOPRAZOLE
     Dosage: 30 MILLIGRAM, QD
  5. FOLIC ACID. [Concomitant]
     Active Substance: FOLIC ACID
     Dosage: 5 MILLIGRAM, QD
  6. LEVOTHYROXINE SODIUM. [Concomitant]
     Active Substance: LEVOTHYROXINE SODIUM
     Dosage: 25 MICROGRAM, QD (IN THE MORNING)
  7. ATORVASTATIN [Concomitant]
     Active Substance: ATORVASTATIN
     Dosage: 80 MILLIGRAM, QD (AT NIGHT)
  8. MONOMIL XL [Concomitant]
     Active Substance: ISOSORBIDE MONONITRATE
     Dosage: 60 MILLIGRAM, QD
  9. ALFACALCIDOL [Concomitant]
     Active Substance: ALFACALCIDOL
     Dosage: 250 NANOGRAM, QD
  10. AMITRIPTYLINE [Concomitant]
     Active Substance: AMITRIPTYLINE
     Dosage: 10 MILLIGRAM (1-2 AT NIGHT)
  11. WARFARIN [Suspect]
     Active Substance: WARFARIN
     Indication: ACUTE MYOCARDIAL INFARCTION
     Dosage: UNK (TAKE AS PRESCRIBED IN ANTICOAGULANT TREATMENT BOOK)
     Route: 065
     Dates: start: 201904, end: 201908
  12. CLOPIDOGREL [Suspect]
     Active Substance: CLOPIDOGREL BISULFATE
     Indication: ACUTE MYOCARDIAL INFARCTION
     Dosage: 75 MILLIGRAM, QD (FOR 1 YEAR UNTIL APRIL 2020)
     Route: 065
     Dates: start: 201904, end: 201908
  13. FERROUS SULFATE. [Concomitant]
     Active Substance: FERROUS SULFATE
     Dosage: 600 MILLIGRAM, QD
  14. EPLERENONE. [Concomitant]
     Active Substance: EPLERENONE
     Dosage: 25 MILLIGRAM, QD
  15. LEVOTHYROXINE SODIUM. [Concomitant]
     Active Substance: LEVOTHYROXINE SODIUM
     Dosage: 20 MICROGRAM, QD (IN THE MORNING)
  16. NICORANDIL [Concomitant]
     Active Substance: NICORANDIL
     Dosage: 40 MILLIGRAM, QD
  17. FUROSEMIDE. [Concomitant]
     Active Substance: FUROSEMIDE
     Dosage: 40 MILLIGRAM, QD (EACH MORNING)
  18. RAMIPRIL. [Concomitant]
     Active Substance: RAMIPRIL
     Dosage: 2.5 MILLIGRAM, QD

REACTIONS (2)
  - Vaginal haemorrhage [Unknown]
  - Immune thrombocytopenic purpura [Unknown]
